FAERS Safety Report 6414131-8 (Version None)
Quarter: 2009Q4

REPORT INFORMATION
  Report Type: 
  Country: None (occurrence: None)
  Receive Date: 20091022
  Receipt Date: 20091022
  Transmission Date: 20100525
  Serious: No
  Sender: FDA-Public Use
  Company Number: None

PATIENT
  Age: 76 Year
  Sex: Male
  Weight: 80.7403 kg

DRUGS (1)
  1. AVODART [Suspect]
     Indication: PROSTATOMEGALY
     Dosage: ONE CAPSULE DAILY
     Dates: start: 20090609, end: 20090614

REACTIONS (4)
  - BREAST PAIN [None]
  - BREAST SWELLING [None]
  - EMOTIONAL DISTRESS [None]
  - INSOMNIA [None]
